FAERS Safety Report 14596651 (Version 1)
Quarter: 2018Q1

REPORT INFORMATION
  Report Type: Spontaneous
  Country: SE (occurrence: SE)
  Receive Date: 20180304
  Receipt Date: 20180304
  Transmission Date: 20180509
  Serious: Yes (Hospitalization)
  Sender: FDA-Public Use
  Company Number: SE-AUROBINDO-AUR-APL-2018-011201

PATIENT
  Age: 33 Year
  Sex: Female

DRUGS (4)
  1. ACETYLCYSTEINE. [Suspect]
     Active Substance: ACETYLCYSTEINE
     Indication: ANALGESIC DRUG LEVEL INCREASED
     Dosage: GIVET ^ENLIGT PM UNDER STEG 2^ ()
     Dates: start: 20180203
  2. ALVEDON [Suspect]
     Active Substance: ACETAMINOPHEN
     Indication: PRODUCT USED FOR UNKNOWN INDICATION
     Dosage: ^OKLAR M?NGD^ ()
     Dates: start: 20180203, end: 20180203
  3. LAMOTRIGINE. [Suspect]
     Active Substance: LAMOTRIGINE
     Indication: PSYCHOGENIC SEIZURE
     Dosage: ^OKLAR M?NGD^ ()
     Dates: start: 20180203, end: 20180203
  4. FLUOXETINE [Suspect]
     Active Substance: FLUOXETINE HYDROCHLORIDE
     Indication: DEPRESSION
     Dosage: ^OKLAR M?NGD^ ()
     Dates: start: 20180203, end: 20180203

REACTIONS (4)
  - Analgesic drug level increased [Unknown]
  - Skin reaction [Recovered/Resolved]
  - Toxicity to various agents [Unknown]
  - Intentional self-injury [Unknown]

NARRATIVE: CASE EVENT DATE: 20180203
